FAERS Safety Report 5800884-6 (Version None)
Quarter: 2008Q3

REPORT INFORMATION
  Report Type: 
  Country: None (occurrence: None)
  Receive Date: 20080701
  Receipt Date: 20080617
  Transmission Date: 20090109
  Serious: Yes (Hospitalization, Other)
  Sender: FDA-Public Use
  Company Number: 2008S1010451

PATIENT
  Age: 58 Year
  Sex: Male
  Weight: 81 kg

DRUGS (8)
  1. KETOPROFEN [Suspect]
     Indication: PAIN
     Dosage: 150 MG; TWICE A DAY; ORAL
     Route: 048
     Dates: start: 20070412, end: 20070414
  2. SUNITINIB MALATE (SUNITINIB MALATE) (50 MG) [Suspect]
     Dosage: 50 MG; DAILY; ORAL, 50 MG; DAILY; ORAL
     Route: 048
     Dates: start: 20080314, end: 20080414
  3. SUNITINIB MALATE (SUNITINIB MALATE) (50 MG) [Suspect]
     Dosage: 50 MG; DAILY; ORAL, 50 MG; DAILY; ORAL
     Route: 048
     Dates: start: 20080510
  4. COLCHICINE [Concomitant]
  5. PANTOPRAZOLE SODIUM [Concomitant]
  6. SANDOSTATINE /00821001/ [Concomitant]
  7. ENALAPRIL MALEATE AND HYDROCHLOROTHIAZIDE TABLETS, USP [Concomitant]
  8. LACTULOSE [Concomitant]

REACTIONS (4)
  - ANAEMIA [None]
  - GASTRIC HAEMORRHAGE [None]
  - HAEMATEMESIS [None]
  - THROMBOCYTOPENIA [None]
